FAERS Safety Report 11948606 (Version 5)
Quarter: 2016Q3

REPORT INFORMATION
  Report Type: Spontaneous
  Country: US (occurrence: US)
  Receive Date: 20160125
  Receipt Date: 20160809
  Transmission Date: 20161109
  Serious: Yes (Life-Threatening, Hospitalization, Other)
  Sender: FDA-Public Use
  Company Number: US-BAYER-2016-011952

PATIENT
  Age: 31 Year
  Sex: Female
  Weight: 68.27 kg

DRUGS (2)
  1. VYVANSE [Concomitant]
     Active Substance: LISDEXAMFETAMINE DIMESYLATE
     Indication: ATTENTION DEFICIT/HYPERACTIVITY DISORDER
     Dosage: 60 MG, UNK
     Dates: start: 2011
  2. MIRENA [Suspect]
     Active Substance: LEVONORGESTREL
     Indication: CONTRACEPTION
     Dosage: 20 MCG/24HR, CONT
     Route: 015
     Dates: start: 20090220, end: 20140312

REACTIONS (9)
  - Abdominal pain [None]
  - Infection [None]
  - Device issue [None]
  - Pregnancy with contraceptive device [None]
  - Drug ineffective [None]
  - Anxiety [None]
  - Uterine perforation [None]
  - Abortion spontaneous [None]
  - Depression [None]

NARRATIVE: CASE EVENT DATE: 2011
